FAERS Safety Report 8358664 (Version 2)
Quarter: 2012Q4

REPORT INFORMATION
  Report Type: 
  Country: CA (occurrence: CA)
  Receive Date: 20120127
  Receipt Date: 20120829
  Transmission Date: 20130627
  Serious: Yes (Hospitalization, Other)
  Sender: FDA-Public Use
  Company Number: PHHY2011CA099056

PATIENT
  Age: 41 Year
  Sex: Female

DRUGS (1)
  1. GILENYA [Suspect]
     Indication: RELAPSING-REMITTING MULTIPLE SCLEROSIS
     Dosage: 0.5 mg, QD
     Route: 048
     Dates: start: 20111103

REACTIONS (6)
  - Appendicitis [Unknown]
  - Abdominal pain [Unknown]
  - Abdominal distension [Unknown]
  - Chest discomfort [Unknown]
  - Nausea [Recovered/Resolved]
  - Headache [Recovered/Resolved]
